FAERS Safety Report 8973911 (Version 1)
Quarter: 2012Q4

REPORT INFORMATION
  Report Type: 
  Country: ES (occurrence: ES)
  Receive Date: 20121218
  Receipt Date: 20121218
  Transmission Date: 20130627
  Serious: Yes (Hospitalization)
  Sender: FDA-Public Use
  Company Number: ES-GLAXOSMITHKLINE-B0852630A

PATIENT
  Age: 40 Year
  Sex: Female

DRUGS (7)
  1. TROBALT [Suspect]
     Indication: PARTIAL SEIZURES
     Route: 048
     Dates: start: 20120615
  2. KEPPRA [Concomitant]
     Indication: PARTIAL SEIZURES
     Dosage: 3000MG per day
     Route: 048
  3. ZONISAMIDE [Concomitant]
     Indication: PARTIAL SEIZURES
     Dosage: 400MG per day
     Route: 048
  4. RIVOTRIL [Concomitant]
     Indication: PARTIAL SEIZURES
     Dosage: 6MG per day
     Route: 048
  5. LUMINAL [Concomitant]
     Indication: PARTIAL SEIZURES
     Dosage: 1.175MG per day
     Route: 048
  6. TOPAMAX [Concomitant]
     Indication: PARTIAL SEIZURES
     Dosage: 5000MG per day
     Route: 048
  7. ACFOL [Concomitant]
     Indication: PARTIAL SEIZURES
     Dosage: 5MG per day
     Route: 048

REACTIONS (1)
  - Diarrhoea [Recovering/Resolving]
